FAERS Safety Report 6238037-2 (Version None)
Quarter: 2009Q2

REPORT INFORMATION
  Report Type: 
  Country: None (occurrence: None)
  Receive Date: 20090622
  Receipt Date: 20090618
  Transmission Date: 20091009
  Serious: Yes (Life-Threatening)
  Sender: FDA-Public Use
  Company Number: GB-ASTRAZENECA-2009GB01353

PATIENT
  Age: 47 Year
  Sex: Female
  Weight: 110 kg

DRUGS (9)
  1. QUETIAPINE FUMARATE [Suspect]
     Indication: MAJOR DEPRESSION
     Route: 048
  2. BUSPIRONE HCL [Concomitant]
  3. DIAZEPAM [Concomitant]
  4. FERROUS GLUCONATE [Concomitant]
  5. LANSOPRAZOLE [Concomitant]
  6. MEDROXYPROGESTERONE ACETATE [Concomitant]
  7. PYRIDOXINE [Concomitant]
  8. VENLAFAXINE HYDROCHLORIDE [Concomitant]
  9. ZOPICLONE [Concomitant]

REACTIONS (1)
  - PULMONARY EMBOLISM [None]
